FAERS Safety Report 13451971 (Version 1)
Quarter: 2017Q2

REPORT INFORMATION
  Report Type: Spontaneous
  Country: None (occurrence: US)
  Receive Date: 20170418
  Receipt Date: 20170418
  Transmission Date: 20170830
  Serious: Yes (Hospitalization)
  Sender: FDA-Public Use
  Company Number: None

PATIENT
  Age: 70 Year
  Sex: Male
  Weight: 57.2 kg

DRUGS (4)
  1. CAMPTOSAR [Suspect]
     Active Substance: IRINOTECAN HYDROCHLORIDE
     Dates: end: 20170330
  2. 5-FLUOROURACIL (5-FU) [Suspect]
     Active Substance: FLUOROURACIL
     Dates: end: 20170330
  3. LEUCOVORIN CALCIUM. [Suspect]
     Active Substance: LEUCOVORIN CALCIUM
     Dates: end: 20170330
  4. ELOXATIN [Suspect]
     Active Substance: OXALIPLATIN
     Dates: end: 20170330

REACTIONS (10)
  - Asthenia [None]
  - Liver abscess [None]
  - Blood creatinine abnormal [None]
  - Septic shock [None]
  - Diarrhoea [None]
  - Vomiting [None]
  - Fatigue [None]
  - Nausea [None]
  - Weight decreased [None]
  - Blood lactic acid abnormal [None]

NARRATIVE: CASE EVENT DATE: 20170410
